FAERS Safety Report 20189417 (Version 1)
Quarter: 2021Q4

REPORT INFORMATION
  Report Type: Report from Study
  Country: GR (occurrence: GR)
  Receive Date: 20211215
  Receipt Date: 20211215
  Transmission Date: 20220303
  Serious: Yes (Hospitalization)
  Sender: FDA-Public Use
  Company Number: GR-BRISTOL-MYERS SQUIBB COMPANY-BMS-2017-109784

PATIENT
  Age: 63 Year
  Sex: Male
  Weight: 80 kg

DRUGS (3)
  1. PLACEBO [Suspect]
     Active Substance: UNSPECIFIED INGREDIENT
     Indication: Malignant melanoma
     Dosage: 250 MILLILITER
     Route: 042
     Dates: start: 20171102, end: 20171123
  2. NIVOLUMAB [Suspect]
     Active Substance: NIVOLUMAB
     Indication: Malignant melanoma
     Dosage: 480 MILLIGRAM, Q4WK
     Route: 042
     Dates: start: 20171102, end: 20171116
  3. PANTOPRAZOLE [Concomitant]
     Active Substance: PANTOPRAZOLE
     Indication: Product used for unknown indication
     Dosage: 40 MG, UNK
     Dates: start: 20171129

REACTIONS (1)
  - Hyperglycaemia [Recovered/Resolved]

NARRATIVE: CASE EVENT DATE: 20171130
